FAERS Safety Report 24015654 (Version 2)
Quarter: 2024Q3

REPORT INFORMATION
  Report Type: Spontaneous
  Country: US (occurrence: US)
  Receive Date: 20240626
  Receipt Date: 20240930
  Transmission Date: 20241016
  Serious: Yes (Other)
  Sender: INCYTE
  Company Number: US-INCYTE CORPORATION-2024IN006669

PATIENT

DRUGS (2)
  1. JAKAFI [Suspect]
     Active Substance: RUXOLITINIB
     Indication: Myelodysplastic syndrome
     Dosage: 10 MILLIGRAM, BID
     Route: 048
     Dates: start: 20240122
  2. JAKAFI [Suspect]
     Active Substance: RUXOLITINIB
     Dosage: 10 MILLIGRAM, BID
     Route: 048
     Dates: start: 20240122

REACTIONS (12)
  - Ovarian cancer [Unknown]
  - Procedural pain [Unknown]
  - Insomnia [Unknown]
  - Blood urine present [Unknown]
  - Arthropathy [Unknown]
  - Decreased activity [Unknown]
  - Laziness [Unknown]
  - Fatigue [Unknown]
  - Depressed mood [Unknown]
  - Energy increased [Unknown]
  - Mobility decreased [Unknown]
  - Off label use [Unknown]
